FAERS Safety Report 4281147-X (Version None)
Quarter: 2004Q1

REPORT INFORMATION
  Report Type: 
  Country: None (occurrence: None)
  Receive Date: 20040129
  Receipt Date: 20031230
  Transmission Date: 20041129
  Serious: Yes (Other)
  Sender: FDA-Public Use
  Company Number: PHNU2003DE04505

PATIENT
  Age: 55 Year
  Sex: Female

DRUGS (3)
  1. ESTRATEST [Suspect]
     Indication: HORMONE REPLACEMENT THERAPY
     Route: 062
     Dates: start: 20030101
  2. LORZAAR PLUS [Concomitant]
     Indication: HYPERTENSION
  3. KNEIPP PFLANZEN-DRAGEES JOHANNISKRAUT [Concomitant]

REACTIONS (5)
  - BLOOD PRESSURE FLUCTUATION [None]
  - BLOOD PRESSURE INCREASED [None]
  - DRUG INEFFECTIVE [None]
  - PALPITATIONS [None]
  - PHARMACEUTICAL PRODUCT COMPLAINT [None]
